FAERS Safety Report 23523030 (Version 1)
Quarter: 2024Q1

REPORT INFORMATION
  Report Type: Spontaneous
  Country: US (occurrence: US)
  Receive Date: 20240214
  Receipt Date: 20240214
  Transmission Date: 20240409
  Serious: Yes (Hospitalization)
  Sender: FDA-Public Use
  Company Number: US-TAKEDA-2024TUS012705

PATIENT
  Sex: Female
  Weight: 136 kg

DRUGS (1)
  1. FRUZAQLA [Suspect]
     Active Substance: FRUQUINTINIB
     Indication: Neuroendocrine carcinoma
     Dosage: 5 MILLIGRAM
     Route: 048
     Dates: start: 20240120

REACTIONS (2)
  - Hospitalisation [Unknown]
  - Off label use [Unknown]
